FAERS Safety Report 11648195 (Version 5)
Quarter: 2016Q1

REPORT INFORMATION
  Report Type: Report from Study
  Country: US (occurrence: US)
  Receive Date: 20151021
  Receipt Date: 20160218
  Transmission Date: 20160525
  Serious: Yes (Hospitalization)
  Sender: FDA-Public Use
  Company Number: US-JNJFOC-20151004114

PATIENT
  Age: 59 Year
  Sex: Male

DRUGS (12)
  1. IMBRUVICA [Suspect]
     Active Substance: IBRUTINIB
     Indication: WALDENSTROM^S MACROGLOBULINAEMIA
     Route: 048
     Dates: start: 20150513, end: 20150921
  2. AMOXIL [Concomitant]
     Active Substance: AMOXICILLIN
  3. PEPCID [Concomitant]
     Active Substance: FAMOTIDINE
  4. LACTOBACILLUS ACIDOPHILUS [Concomitant]
     Active Substance: LACTOBACILLUS ACIDOPHILUS
  5. IMBRUVICA [Suspect]
     Active Substance: IBRUTINIB
     Indication: WALDENSTROM^S MACROGLOBULINAEMIA
     Route: 048
  6. ATARAX [Concomitant]
     Active Substance: HYDROXYZINE\HYDROXYZINE HYDROCHLORIDE
  7. CITALOPRAM [Concomitant]
     Active Substance: CITALOPRAM HYDROBROMIDE
  8. SINGULAIR [Concomitant]
     Active Substance: MONTELUKAST SODIUM
  9. CLOBETASOL [Concomitant]
     Active Substance: CLOBETASOL
  10. CELEXA [Concomitant]
     Active Substance: CITALOPRAM HYDROBROMIDE
  11. PREDNISONE. [Concomitant]
     Active Substance: PREDNISONE
     Indication: WALDENSTROM^S MACROGLOBULINAEMIA
     Route: 048
     Dates: start: 20150513
  12. ALLEGRA [Concomitant]
     Active Substance: FEXOFENADINE HYDROCHLORIDE

REACTIONS (8)
  - Lung infiltration [Recovered/Resolved]
  - Oedema [Unknown]
  - Chondrocalcinosis pyrophosphate [Unknown]
  - Fungal infection [Unknown]
  - Pneumonia [Unknown]
  - Diarrhoea [Unknown]
  - Arthralgia [Unknown]
  - Fungal sepsis [Unknown]

NARRATIVE: CASE EVENT DATE: 2015
